FAERS Safety Report 7484918-1 (Version None)
Quarter: 2011Q2

REPORT INFORMATION
  Report Type: 
  Country: None (occurrence: None)
  Receive Date: 20110517
  Receipt Date: 20110506
  Transmission Date: 20111010
  Serious: Yes (Hospitalization)
  Sender: FDA-Public Use
  Company Number: B0717630A

PATIENT
  Sex: Female

DRUGS (5)
  1. ATHYMIL [Suspect]
     Dosage: 60MG PER DAY
     Route: 048
     Dates: end: 20110203
  2. NOCTRAN [Suspect]
     Dosage: 10MG PER DAY
     Route: 048
     Dates: start: 20110118, end: 20110203
  3. INDAPAMIDE [Concomitant]
     Dosage: 1.5MG PER DAY
     Route: 065
     Dates: end: 20110203
  4. XANAX [Concomitant]
     Route: 065
  5. PAROXETINE HCL [Suspect]
     Route: 048
     Dates: start: 20110104, end: 20110203

REACTIONS (4)
  - DRY MOUTH [None]
  - CONFUSIONAL STATE [None]
  - OROPHARYNGEAL PLAQUE [None]
  - ASTHENIA [None]
